FAERS Safety Report 5397470-1 (Version None)
Quarter: 2007Q3

REPORT INFORMATION
  Report Type: 
  Country: None (occurrence: None)
  Receive Date: 20070723
  Receipt Date: 20070723
  Transmission Date: 20080115
  Serious: Yes (Other)
  Sender: FDA-Public Use
  Company Number: None

PATIENT
  Sex: Female
  Weight: 44.5886 kg

DRUGS (2)
  1. OXYCONTIN [Suspect]
     Indication: PELVIC PAIN
     Dosage: 80MG QID ORAL
     Route: 048
  2. OXYCONTIN [Suspect]
     Indication: SCLERODERMA
     Dosage: 80MG QID ORAL
     Route: 048

REACTIONS (4)
  - NAUSEA [None]
  - NIGHTMARE [None]
  - PALPITATIONS [None]
  - VOMITING [None]
